FAERS Safety Report 5514381-9 (Version None)
Quarter: 2007Q4

REPORT INFORMATION
  Report Type: 
  Country: None (occurrence: None)
  Receive Date: 20071113
  Receipt Date: 20070524
  Transmission Date: 20080405
  Serious: No
  Sender: FDA-Public Use
  Company Number: A0649752A

PATIENT
  Sex: Male

DRUGS (4)
  1. COREG [Suspect]
     Indication: DRUG USE FOR UNKNOWN INDICATION
     Dosage: 6.25MG TWICE PER DAY
     Route: 048
  2. EYE DROP [Concomitant]
  3. TIMOPTIC [Concomitant]
  4. THYROID TAB [Concomitant]

REACTIONS (2)
  - ADVERSE DRUG REACTION [None]
  - FATIGUE [None]
